FAERS Safety Report 12012355 (Version 2)
Quarter: 2016Q1

REPORT INFORMATION
  Report Type: Spontaneous
  Country: PL (occurrence: PL)
  Receive Date: 20160205
  Receipt Date: 20160229
  Transmission Date: 20160526
  Serious: Yes (Life-Threatening)
  Sender: FDA-Public Use
  Company Number: PL-JNJFOC-20160122834

PATIENT
  Age: 10 Month
  Sex: Male
  Weight: 20 kg

DRUGS (3)
  1. FENISTIL [Concomitant]
     Active Substance: DIMETHINDENE
     Indication: PRODUCT USED FOR UNKNOWN INDICATION
     Route: 065
  2. ZYRTEC [Suspect]
     Active Substance: CETIRIZINE HYDROCHLORIDE
     Indication: PRURITUS ALLERGIC
     Dosage: 1-5 DROPS
     Route: 048
     Dates: start: 20101213, end: 20101215
  3. ZYRTEC [Suspect]
     Active Substance: CETIRIZINE HYDROCHLORIDE
     Indication: OFF LABEL USE
     Dosage: 1-5 DROPS
     Route: 048
     Dates: start: 20101213, end: 20101215

REACTIONS (10)
  - Confusional state [Recovered/Resolved with Sequelae]
  - Tic [Recovered/Resolved with Sequelae]
  - Syncope [Recovered/Resolved with Sequelae]
  - Apnoea [Recovered/Resolved with Sequelae]
  - Pyrexia [Recovered/Resolved]
  - Off label use [Recovered/Resolved]
  - Product use issue [Recovered/Resolved]
  - Memory impairment [Recovered/Resolved with Sequelae]
  - Tearfulness [Recovered/Resolved]
  - Product use issue [Recovered/Resolved]

NARRATIVE: CASE EVENT DATE: 20101213
